FAERS Safety Report 19350302 (Version 1)
Quarter: 2021Q2

REPORT INFORMATION
  Report Type: Spontaneous
  Country: US (occurrence: US)
  Receive Date: 20210530
  Receipt Date: 20210530
  Transmission Date: 20210717
  Serious: Yes (Hospitalization)
  Sender: FDA-Public Use
  Company Number: None

PATIENT
  Age: 41 Year
  Sex: Female
  Weight: 70.31 kg

DRUGS (4)
  1. VYVANSE [Concomitant]
     Active Substance: LISDEXAMFETAMINE DIMESYLATE
  2. TRAZODONE [Concomitant]
     Active Substance: TRAZODONE HYDROCHLORIDE
  3. PARAGARD T 380A [Suspect]
     Active Substance: COPPER
     Dates: start: 20170901
  4. APLENZIN [Concomitant]
     Active Substance: BUPROPION HYDROBROMIDE

REACTIONS (19)
  - Abdominal pain [None]
  - Gastric disorder [None]
  - Speech disorder [None]
  - Toxicity to various agents [None]
  - Coordination abnormal [None]
  - Kayser-Fleischer ring [None]
  - Memory impairment [None]
  - Fatigue [None]
  - Nephrolithiasis [None]
  - Movement disorder [None]
  - Urinary tract infection [None]
  - Dysphagia [None]
  - Hepato-lenticular degeneration [None]
  - Liver disorder [None]
  - Ascites [None]
  - Feeling abnormal [None]
  - Decreased appetite [None]
  - Jaundice [None]
  - Musculoskeletal stiffness [None]

NARRATIVE: CASE EVENT DATE: 20210528
